FAERS Safety Report 11791450 (Version 1)
Quarter: 2015Q4

REPORT INFORMATION
  Report Type: Report from Study
  Country: CA (occurrence: CA)
  Receive Date: 20151201
  Receipt Date: 20151201
  Transmission Date: 20160305
  Serious: Yes (Other)
  Sender: FDA-Public Use
  Company Number: CA-JNJFOC-20151124398

PATIENT
  Age: 57 Year
  Sex: Female
  Weight: 90 kg

DRUGS (1)
  1. STELARA [Suspect]
     Active Substance: USTEKINUMAB
     Indication: PSORIASIS
     Route: 058
     Dates: start: 20111022

REACTIONS (3)
  - Cholecystectomy [Unknown]
  - Hernia [Unknown]
  - Post procedural infection [Unknown]

NARRATIVE: CASE EVENT DATE: 201511
